FAERS Safety Report 6059885-8 (Version None)
Quarter: 2009Q1

REPORT INFORMATION
  Report Type: 
  Country: None (occurrence: None)
  Receive Date: 20090130
  Receipt Date: 20081119
  Transmission Date: 20090719
  Serious: No
  Sender: FDA-Public Use
  Company Number: US-ABBOTT-08P-163-0489054-00

PATIENT
  Sex: Male

DRUGS (3)
  1. LUPRON [Suspect]
     Indication: PROSTATE CANCER
  2. LUPRON [Suspect]
  3. LUPRON [Suspect]

REACTIONS (6)
  - ALOPECIA [None]
  - FATIGUE [None]
  - HOT FLUSH [None]
  - LIBIDO DECREASED [None]
  - MUSCLE ATROPHY [None]
  - NIGHT SWEATS [None]
